FAERS Safety Report 10361049 (Version 1)
Quarter: 2014Q3

REPORT INFORMATION
  Report Type: Spontaneous
  Country: US (occurrence: US)
  Receive Date: 20140804
  Receipt Date: 20140804
  Transmission Date: 20150326
  Serious: No
  Sender: FDA-Public Use
  Company Number: US-PFIZER INC-2014214340

PATIENT
  Age: 46 Year
  Sex: Female
  Weight: 68.03 kg

DRUGS (2)
  1. ADVIL MIGRAINE [Suspect]
     Active Substance: IBUPROFEN
     Indication: MIGRAINE
     Dosage: 3 IN 24 HOURS, THREE TIMES A DAY
     Dates: start: 20140723, end: 20140728
  2. DEPAKOTE [Concomitant]
     Active Substance: DIVALPROEX SODIUM
     Indication: CONVULSION
     Dosage: 1000 MG, TWO TIMES A DAY

REACTIONS (2)
  - Overdose [Unknown]
  - Drug ineffective [Unknown]

NARRATIVE: CASE EVENT DATE: 201407
